FAERS Safety Report 23731755 (Version 1)
Quarter: 2024Q2

REPORT INFORMATION
  Report Type: Spontaneous
  Country: US (occurrence: None)
  Receive Date: 20240410
  Receipt Date: 20240410
  Transmission Date: 20240716
  Serious: No
  Sender: FDA-Public Use
  Company Number: None

PATIENT
  Age: 71 Year
  Sex: Male

DRUGS (4)
  1. OPSUMIT [Suspect]
     Active Substance: MACITENTAN
     Indication: Pulmonary arterial hypertension
     Dosage: 10 MG QD PO
     Route: 048
     Dates: start: 202309
  2. DEVICE [Concomitant]
     Active Substance: DEVICE
  3. SILDENAFIL CITRATE [Concomitant]
     Active Substance: SILDENAFIL CITRATE
  4. OFEV [Concomitant]
     Active Substance: NINTEDANIB

REACTIONS (3)
  - Pancreatitis [None]
  - Haemoglobin decreased [None]
  - Weight decreased [None]

NARRATIVE: CASE EVENT DATE: 20240403
